FAERS Safety Report 4457336-8 (Version None)
Quarter: 2004Q3

REPORT INFORMATION
  Report Type: 
  Country: None (occurrence: None)
  Receive Date: 20040922
  Receipt Date: 20040903
  Transmission Date: 20050211
  Serious: Yes (Hospitalization)
  Sender: FDA-Public Use
  Company Number: USA040977484

PATIENT
  Age: 79 Year
  Sex: Female

DRUGS (5)
  1. EVISTA [Suspect]
     Dosage: 60 MG DAY
     Dates: start: 20040101
  2. CALTRATE (CALCIUM CARBONATE) [Concomitant]
  3. ASPIRIN [Concomitant]
  4. PRILOSEC [Concomitant]
  5. PLAVIX [Concomitant]

REACTIONS (3)
  - FALL [None]
  - GAIT DISTURBANCE [None]
  - SPINAL FRACTURE [None]
